FAERS Safety Report 6193320-4 (Version None)
Quarter: 2009Q2

REPORT INFORMATION
  Report Type: 
  Country: None (occurrence: None)
  Receive Date: 20090518
  Receipt Date: 20090507
  Transmission Date: 20091009
  Serious: Yes (Death)
  Sender: FDA-Public Use
  Company Number: CA-BAXTER-2009BH004843

PATIENT
  Age: 46 Year
  Sex: Female

DRUGS (2)
  1. BUMINATE 25% [Suspect]
     Indication: DRUG USE FOR UNKNOWN INDICATION
     Dates: start: 20090209, end: 20090209
  2. BUMINATE 25% [Suspect]
     Dates: start: 20090209, end: 20090209

REACTIONS (5)
  - ACIDOSIS [None]
  - GASTROINTESTINAL HAEMORRHAGE [None]
  - HYPERCALCAEMIA [None]
  - HYPOTENSION [None]
  - MENINGITIS [None]
